FAERS Safety Report 24204760 (Version 12)
Quarter: 2025Q2

REPORT INFORMATION
  Report Type: Report from Study
  Country: US (occurrence: US)
  Receive Date: 20240813
  Receipt Date: 20250501
  Transmission Date: 20250716
  Serious: Yes (Other)
  Sender: INSMED
  Company Number: US-INSMED, INC.-2024-00557-US

PATIENT
  Sex: Female

DRUGS (7)
  1. ARIKAYCE [Suspect]
     Active Substance: AMIKACIN
     Indication: Mycobacterium avium complex infection
     Dosage: 590 MILLIGRAM, QD
     Route: 055
     Dates: start: 20240206, end: 20241009
  2. ARIKAYCE [Suspect]
     Active Substance: AMIKACIN
     Dosage: 590 MILLIGRAM, QD
     Route: 055
     Dates: start: 20241101, end: 202411
  3. ARIKAYCE [Suspect]
     Active Substance: AMIKACIN
     Route: 055
     Dates: end: 20250128
  4. ARIKAYCE [Suspect]
     Active Substance: AMIKACIN
     Route: 055
     Dates: start: 202502, end: 2025
  5. RIFAMPIN [Concomitant]
     Active Substance: RIFAMPIN
     Indication: Product used for unknown indication
     Route: 065
     Dates: end: 20241009
  6. ETHAMBUTOL [Concomitant]
     Active Substance: ETHAMBUTOL HYDROCHLORIDE
     Indication: Product used for unknown indication
     Route: 065
  7. SODIUM CHLORIDE [Concomitant]
     Active Substance: SODIUM CHLORIDE
     Indication: Product used for unknown indication
     Dosage: UNK, BID
     Route: 065

REACTIONS (29)
  - Oxygen saturation decreased [Not Recovered/Not Resolved]
  - Bronchiectasis [Unknown]
  - Dyspepsia [Not Recovered/Not Resolved]
  - Sputum retention [Not Recovered/Not Resolved]
  - Gait disturbance [Unknown]
  - Arthropathy [Not Recovered/Not Resolved]
  - Immune system disorder [Unknown]
  - Rhinorrhoea [Not Recovered/Not Resolved]
  - Rhinorrhoea [Unknown]
  - Chills [Unknown]
  - Dyspnoea exertional [Not Recovered/Not Resolved]
  - Productive cough [Not Recovered/Not Resolved]
  - Rash [Recovered/Resolved]
  - Rash [Recovered/Resolved]
  - Cough [Not Recovered/Not Resolved]
  - Illness [Unknown]
  - Fatigue [Not Recovered/Not Resolved]
  - Malaise [Not Recovered/Not Resolved]
  - Dysphonia [Not Recovered/Not Resolved]
  - Weight decreased [Not Recovered/Not Resolved]
  - Pyrexia [Unknown]
  - Dyspnoea [Not Recovered/Not Resolved]
  - Drug ineffective [Unknown]
  - Product dose omission issue [Unknown]
  - Therapy interrupted [Unknown]
  - Accidental underdose [Unknown]
  - Incorrect product administration duration [Unknown]
  - Device leakage [Unknown]
  - Device issue [Unknown]

NARRATIVE: CASE EVENT DATE: 20240101
